FAERS Safety Report 14030262 (Version 1)
Quarter: 2017Q4

REPORT INFORMATION
  Report Type: Spontaneous
  Country: SE (occurrence: SE)
  Receive Date: 20171002
  Receipt Date: 20171002
  Transmission Date: 20180321
  Serious: Yes (Hospitalization, Other)
  Sender: FDA-Public Use
  Company Number: SE-MYLANLABS-2017M1059981

PATIENT
  Age: 49 Year
  Sex: Female

DRUGS (2)
  1. ERY-MAX [Suspect]
     Active Substance: ERYTHROMYCIN
     Indication: COUGH
     Dosage: UNK
     Dates: start: 20170722, end: 20170725
  2. PROGYNON [Concomitant]
     Dosage: UNK

REACTIONS (1)
  - Vasculitis [Unknown]

NARRATIVE: CASE EVENT DATE: 20170724
